FAERS Safety Report 16082108 (Version 5)
Quarter: 2019Q4

REPORT INFORMATION
  Report Type: Spontaneous
  Country: US (occurrence: US)
  Receive Date: 20190317
  Receipt Date: 20191113
  Transmission Date: 20200122
  Serious: Yes (Hospitalization, Other)
  Sender: FDA-Public Use
  Company Number: US-JNJFOC-20190306645

PATIENT
  Age: 57 Year
  Sex: Male
  Weight: 130 kg

DRUGS (9)
  1. VENETOCLAX. [Suspect]
     Active Substance: VENETOCLAX
     Indication: DIFFUSE LARGE B-CELL LYMPHOMA
     Dosage: 50 MG, QD
     Route: 048
     Dates: start: 20190209, end: 20190212
  2. VENETOCLAX. [Suspect]
     Active Substance: VENETOCLAX
     Dosage: 800 MG, QD
     Route: 048
     Dates: start: 20190219, end: 20190613
  3. PREDNISONE. [Suspect]
     Active Substance: PREDNISONE
     Indication: DIFFUSE LARGE B-CELL LYMPHOMA
     Dosage: 100 MG, QD
     Route: 048
     Dates: start: 20190208
  4. VENETOCLAX. [Suspect]
     Active Substance: VENETOCLAX
     Dosage: 800 MG, QD
     Route: 048
     Dates: start: 20190219, end: 20190221
  5. IMBRUVICA [Suspect]
     Active Substance: IBRUTINIB
     Indication: DIFFUSE LARGE B-CELL LYMPHOMA
     Dosage: 100 MG, QD
     Route: 048
     Dates: start: 20190208
  6. VENETOCLAX. [Suspect]
     Active Substance: VENETOCLAX
     Dosage: 200 MG, QD
     Route: 048
     Dates: start: 20190213, end: 20190215
  7. VENETOCLAX. [Suspect]
     Active Substance: VENETOCLAX
     Dosage: 600 MG, QD
     Route: 048
     Dates: start: 20190216, end: 20190218
  8. OBINUTUZUMAB. [Suspect]
     Active Substance: OBINUTUZUMAB
     Indication: DIFFUSE LARGE B-CELL LYMPHOMA
     Dosage: 1000 MG, QD
     Route: 042
     Dates: start: 20190208, end: 20190601
  9. LENALIDOMIDE [Suspect]
     Active Substance: LENALIDOMIDE
     Indication: DIFFUSE LARGE B-CELL LYMPHOMA
     Dosage: 15 MG, QD
     Route: 048
     Dates: start: 20190208

REACTIONS (4)
  - Off label use [Unknown]
  - Product use in unapproved indication [Unknown]
  - Embolism venous [Recovered/Resolved]
  - Oesophageal candidiasis [Recovered/Resolved]

NARRATIVE: CASE EVENT DATE: 20190208
